FAERS Safety Report 4404496-0 (Version None)
Quarter: 2004Q3

REPORT INFORMATION
  Report Type: 
  Country: None (occurrence: None)
  Receive Date: 20040720
  Receipt Date: 20040707
  Transmission Date: 20050211
  Serious: Yes (Hospitalization)
  Sender: FDA-Public Use
  Company Number: 04-000417

PATIENT
  Age: 49 Year
  Sex: Female

DRUGS (1)
  1. OVCON-35 [Suspect]
     Indication: HAEMORRHAGE
     Dosage: 34/400 UG QD, ORAL
     Route: 048
     Dates: start: 20040101, end: 20040101

REACTIONS (6)
  - ASTHENIA [None]
  - FEELING ABNORMAL [None]
  - FULL BLOOD COUNT DECREASED [None]
  - HAEMORRHAGE [None]
  - MUSCLE CRAMP [None]
  - PULMONARY THROMBOSIS [None]
